FAERS Safety Report 7297707-8 (Version None)
Quarter: 2011Q1

REPORT INFORMATION
  Report Type: 
  Country: None (occurrence: None)
  Receive Date: 20110217
  Receipt Date: 20110209
  Transmission Date: 20110831
  Serious: Yes (Other)
  Sender: FDA-Public Use
  Company Number: US-ASTRAZENECA-2007UW05891

PATIENT
  Age: 397 Month
  Sex: Female
  Weight: 117 kg

DRUGS (6)
  1. HALDOL [Concomitant]
  2. ABILIFY [Concomitant]
  3. GEODON [Concomitant]
  4. SEROQUEL [Suspect]
     Indication: PSYCHOTIC DISORDER
     Route: 048
     Dates: start: 20040112, end: 20051114
  5. RISPERDAL [Concomitant]
  6. ZYPREXA [Concomitant]
     Dates: start: 20010101, end: 20020101

REACTIONS (3)
  - GALLBLADDER DISORDER [None]
  - PANCREATITIS ACUTE [None]
  - TYPE 2 DIABETES MELLITUS [None]
